FAERS Safety Report 16898278 (Version 1)
Quarter: 2019Q4

REPORT INFORMATION
  Report Type: Spontaneous
  Country: GR (occurrence: GR)
  Receive Date: 20191009
  Receipt Date: 20191009
  Transmission Date: 20200122
  Serious: Yes (Life-Threatening, Other)
  Sender: FDA-Public Use
  Company Number: GR-ACCORD-071434

PATIENT
  Age: 73 Year
  Sex: Female

DRUGS (5)
  1. SOMATULINE [Suspect]
     Active Substance: LANREOTIDE ACETATE
     Indication: PANCREATIC NEOPLASM
  2. TEMOZOLOMIDE. [Suspect]
     Active Substance: TEMOZOLOMIDE
     Indication: PANCREATIC NEUROENDOCRINE TUMOUR
     Dosage: AFTER 3 CYCLES
  3. SOMATOSTATIN [Suspect]
     Active Substance: SOMATOSTATIN
     Indication: PANCREATIC NEUROENDOCRINE TUMOUR
     Dosage: AFTER 3 CYCLES
  4. CAPECITABINE. [Suspect]
     Active Substance: CAPECITABINE
     Indication: PANCREATIC NEUROENDOCRINE TUMOUR
     Dosage: AFTER 3 CYCLES
  5. CAPECITABINE MYLAN [Suspect]
     Active Substance: CAPECITABINE
     Indication: PANCREATIC NEOPLASM

REACTIONS (3)
  - Drug ineffective [Unknown]
  - Hypoglycaemia [Recovered/Resolved]
  - Off label use [Unknown]
